FAERS Safety Report 10844236 (Version 1)
Quarter: 2015Q1

REPORT INFORMATION
  Report Type: Spontaneous
  Country: DK (occurrence: DK)
  Receive Date: 20150220
  Receipt Date: 20150220
  Transmission Date: 20150721
  Serious: Yes (Other)
  Sender: FDA-Public Use
  Company Number: DK-PFIZER INC-2015062767

PATIENT
  Age: 35 Year
  Sex: Female
  Weight: 75 kg

DRUGS (1)
  1. MINPROSTIN [Suspect]
     Active Substance: DINOPROSTONE
     Indication: LABOUR INDUCTION
     Dosage: DOSE: 3 MG MAX TWICE IN A DAY. STRENGTH: 3 MG.
     Route: 067
     Dates: start: 20150211, end: 20150211

REACTIONS (1)
  - Uterine hyperstimulation [Recovered/Resolved]

NARRATIVE: CASE EVENT DATE: 20150211
